FAERS Safety Report 6389060-9 (Version None)
Quarter: 2009Q4

REPORT INFORMATION
  Report Type: 
  Country: None (occurrence: None)
  Receive Date: 20091006
  Receipt Date: 20090923
  Transmission Date: 20100525
  Serious: Yes (Other)
  Sender: FDA-Public Use
  Company Number: CA-JNJCH-2009025732

PATIENT
  Sex: Female

DRUGS (1)
  1. BENYLIN 1 ALL-IN-ONE COLD AND FLU SYRUP [Suspect]
     Indication: DRUG USE FOR UNKNOWN INDICATION
     Route: 048
     Dates: start: 20090923, end: 20090923

REACTIONS (2)
  - CHEST PAIN [None]
  - DYSPNOEA [None]
